FAERS Safety Report 8785932 (Version 1)
Quarter: 2012Q4

REPORT INFORMATION
  Report Type: 
  Country: MX (occurrence: MX)
  Receive Date: 20120914
  Receipt Date: 20120914
  Transmission Date: 20130627
  Serious: Yes (Death)
  Sender: FDA-Public Use
  Company Number: MX-ROCHE-1112516

PATIENT

DRUGS (2)
  1. AVASTIN [Suspect]
     Indication: BREAST CANCER
     Route: 065
  2. TOPOTECAN HYDROCHLORIDE [Suspect]
     Indication: BREAST CANCER

REACTIONS (2)
  - Leukopenia [Fatal]
  - Septic shock [Fatal]
